APPROVED DRUG PRODUCT: CASPOFUNGIN ACETATE
Active Ingredient: CASPOFUNGIN ACETATE
Strength: 70MG/VIAL
Dosage Form/Route: POWDER;INTRAVENOUS
Application: A205923 | Product #002
Applicant: XELLIA PHARMACEUTICALS APS
Approved: Jul 2, 2018 | RLD: No | RS: No | Type: DISCN